FAERS Safety Report 6988243-4 (Version None)
Quarter: 2010Q3

REPORT INFORMATION
  Report Type: 
  Country: None (occurrence: None)
  Receive Date: 20100916
  Receipt Date: 20100906
  Transmission Date: 20110219
  Serious: Yes (Life-Threatening, Hospitalization)
  Sender: FDA-Public Use
  Company Number: JP-ABBOTT-10P-087-0661014-00

PATIENT
  Age: 76 Year
  Sex: Female

DRUGS (2)
  1. CLARITHROMYCIN [Suspect]
     Indication: NASOPHARYNGITIS
     Dates: start: 20080828, end: 20080903
  2. FAMOTIDINE [Suspect]
     Indication: GASTRITIS
     Dates: start: 20080828, end: 20080903

REACTIONS (5)
  - ADAMS-STOKES SYNDROME [None]
  - ATRIOVENTRICULAR BLOCK COMPLETE [None]
  - ELECTROCARDIOGRAM QT PROLONGED [None]
  - TORSADE DE POINTES [None]
  - VENTRICULAR FIBRILLATION [None]
